FAERS Safety Report 7620624-8 (Version None)
Quarter: 2011Q3

REPORT INFORMATION
  Report Type: 
  Country: None (occurrence: None)
  Receive Date: 20110719
  Receipt Date: 20110711
  Transmission Date: 20111222
  Serious: Yes (Other)
  Sender: FDA-Public Use
  Company Number: US-ROCHE-789742

PATIENT
  Age: 41 Year
  Sex: Male

DRUGS (10)
  1. ATORVASTATIN [Suspect]
     Route: 048
  2. CYCLOBENZAPRINE HYDROCHLORIDE [Suspect]
     Route: 065
  3. INDOMETHACIN [Suspect]
     Route: 065
  4. SILDENAFIL CITRATE [Suspect]
     Route: 048
  5. ALPRAZOLAM [Suspect]
     Route: 065
  6. CARISOPRODOL [Suspect]
     Route: 065
  7. NICOTINE [Suspect]
     Dosage: FORM:  IMPREGNATED PAD.
     Route: 065
  8. ZOLPIDEM TARTRATE [Suspect]
     Route: 065
  9. CLONAZEPAM [Suspect]
     Route: 065
  10. AMITRIPTYLINE HCL [Suspect]
     Route: 065

REACTIONS (3)
  - ANKLE FRACTURE [None]
  - CONVULSION [None]
  - OESOPHAGEAL OPERATION [None]
